FAERS Safety Report 10605260 (Version 1)
Quarter: 2014Q4

REPORT INFORMATION
  Report Type: Spontaneous
  Country: US (occurrence: US)
  Receive Date: 20141124
  Receipt Date: 20141124
  Transmission Date: 20150529
  Serious: No
  Sender: FDA-Public Use
  Company Number: US-SA-2014SA143003

PATIENT

DRUGS (1)
  1. RENVELA [Suspect]
     Active Substance: SEVELAMER CARBONATE
     Dosage: RENVELA TAB 800 MG/1 TAB WITH MEALS, NONE WITH SNACKS
     Route: 048

REACTIONS (1)
  - Constipation [Not Recovered/Not Resolved]
